FAERS Safety Report 22049550 (Version 4)
Quarter: 2023Q1

REPORT INFORMATION
  Report Type: Spontaneous
  Country: IL (occurrence: IL)
  Receive Date: 20230301
  Receipt Date: 20230327
  Transmission Date: 20230418
  Serious: Yes (Other)
  Sender: FDA-Public Use
  Company Number: IL-009507513-2302ISR008471

PATIENT
  Age: 75 Year
  Sex: Male

DRUGS (12)
  1. MOLNUPIRAVIR [Suspect]
     Active Substance: MOLNUPIRAVIR
     Indication: COVID-19 treatment
     Route: 048
  2. PAXLOVID [Suspect]
     Active Substance: NIRMATRELVIR\RITONAVIR
     Indication: COVID-19 treatment
     Dosage: FIRST REGIMEN
     Route: 048
  3. PAXLOVID [Suspect]
     Active Substance: NIRMATRELVIR\RITONAVIR
     Indication: COVID-19
     Dosage: MONOTHERAPY, REGIMEN #2
     Route: 048
  4. METFORMIN [Concomitant]
     Active Substance: METFORMIN HYDROCHLORIDE
  5. REMDESIVIR [Concomitant]
     Active Substance: REMDESIVIR
  6. FUROSEMIDE [Concomitant]
     Active Substance: FUROSEMIDE
  7. BENDAMUSTINE [Concomitant]
     Active Substance: BENDAMUSTINE
  8. XARELTO [Concomitant]
     Active Substance: RIVAROXABAN
  9. RITUXIMAB [Concomitant]
     Active Substance: RITUXIMAB
  10. FOLIC ACID [Concomitant]
     Active Substance: FOLIC ACID
  11. SULFAMETHOXAZOLE\TRIMETHOPRIM [Concomitant]
     Active Substance: SULFAMETHOXAZOLE\TRIMETHOPRIM
  12. PREDNISONE [Concomitant]
     Active Substance: PREDNISONE

REACTIONS (6)
  - Off label use [Unknown]
  - Blindness [Unknown]
  - Inappropriate schedule of product administration [Unknown]
  - Retinitis [Unknown]
  - Retinal detachment [Unknown]
  - Drug resistance [Unknown]

NARRATIVE: CASE EVENT DATE: 20221213
